FAERS Safety Report 9917556 (Version 2)
Quarter: 2014Q1

REPORT INFORMATION
  Report Type: Spontaneous
  Country: JP (occurrence: JP)
  Receive Date: 20140221
  Receipt Date: 20140305
  Transmission Date: 20141002
  Serious: Yes (Other)
  Sender: FDA-Public Use
  Company Number: JP-SANTEN INC.-INC-14-000042

PATIENT
  Age: 39 Year
  Sex: Male

DRUGS (2)
  1. CRAVIT (LEVOFLOXACIN 1.5%) [Suspect]
     Indication: CONJUNCTIVITIS
     Route: 061
     Dates: start: 20140203, end: 20140203
  2. LEVOFLOXACIN [Concomitant]
     Route: 061
     Dates: start: 20140203, end: 20140203

REACTIONS (1)
  - Anaphylactoid reaction [Recovered/Resolved]
